FAERS Safety Report 5901990-8 (Version None)
Quarter: 2008Q3

REPORT INFORMATION
  Report Type: 
  Country: None (occurrence: None)
  Receive Date: 20080925
  Receipt Date: 20080917
  Transmission Date: 20090109
  Serious: Yes (Other)
  Sender: FDA-Public Use
  Company Number: 20250

PATIENT
  Age: 81 Year
  Sex: Female

DRUGS (2)
  1. CARBOPLATIN [Suspect]
     Indication: OVARIAN CANCER
     Dosage: 300 MG PER_CYCLE IV
     Route: 042
  2. PACLITAXEL [Suspect]
     Indication: OVARIAN CANCER
     Dosage: 260 MG PER_CYCLE IV
     Route: 042

REACTIONS (3)
  - DERMATOMYOSITIS [None]
  - GENERAL PHYSICAL HEALTH DETERIORATION [None]
  - REFUSAL OF TREATMENT BY PATIENT [None]
